FAERS Safety Report 16435182 (Version 4)
Quarter: 2020Q2

REPORT INFORMATION
  Report Type: Spontaneous
  Country: IE (occurrence: IE)
  Receive Date: 20190614
  Receipt Date: 20200525
  Transmission Date: 20200713
  Serious: Yes (Other)
  Sender: FDA-Public Use
  Company Number: IE-PFIZER INC-2019250197

PATIENT
  Age: 42 Year
  Sex: Male

DRUGS (3)
  1. ATROPINE SULFATE. [Suspect]
     Active Substance: ATROPINE SULFATE
     Dosage: UNK (120 UG/H)
  2. ATROPINE SULFATE. [Suspect]
     Active Substance: ATROPINE SULFATE
     Indication: CHEMICAL POISONING
     Dosage: 600 UG, UNK
     Route: 048
  3. PRALIDOXIME [Concomitant]
     Active Substance: PRALIDOXIME
     Indication: POISONING
     Dosage: UNK

REACTIONS (1)
  - Anticholinergic syndrome [Recovered/Resolved]
